FAERS Safety Report 6151656-7 (Version None)
Quarter: 2009Q2

REPORT INFORMATION
  Report Type: 
  Country: None (occurrence: None)
  Receive Date: 20090410
  Receipt Date: 20090330
  Transmission Date: 20091009
  Serious: Yes (Other)
  Sender: FDA-Public Use
  Company Number: US-PFIZER INC-2009194707

PATIENT
  Sex: Female
  Weight: 44.444 kg

DRUGS (4)
  1. GEODON [Suspect]
     Indication: BIPOLAR DISORDER
     Dosage: FREQUENCY: 3X/DAY, EVERY DAY;
     Dates: start: 20090101, end: 20090101
  2. GEODON [Suspect]
     Indication: OBSESSIVE-COMPULSIVE DISORDER
  3. CELEXA [Concomitant]
  4. LITHIUM [Concomitant]

REACTIONS (9)
  - ANGER [None]
  - DELIRIUM [None]
  - EMOTIONAL DISORDER [None]
  - HALLUCINATION [None]
  - HYPERHIDROSIS [None]
  - HYPERSENSITIVITY [None]
  - LETHARGY [None]
  - PERSONALITY CHANGE [None]
  - RESTLESS LEGS SYNDROME [None]
